FAERS Safety Report 11199171 (Version 1)
Quarter: 2015Q2

REPORT INFORMATION
  Report Type: Spontaneous
  Country: US (occurrence: US)
  Receive Date: 20150618
  Receipt Date: 20150618
  Transmission Date: 20150821
  Serious: Yes (Other)
  Sender: FDA-Public Use
  Company Number: US-TEVA-567147USA

PATIENT
  Sex: Male

DRUGS (2)
  1. LAMOTRIGINE. [Suspect]
     Active Substance: LAMOTRIGINE
     Dosage: 450 MILLIGRAM DAILY;
     Route: 065
  2. KEPPRA [Suspect]
     Active Substance: LEVETIRACETAM
     Dosage: 1500 MILLIGRAM DAILY;
     Route: 065

REACTIONS (4)
  - Adverse event [Unknown]
  - Anger [Recovered/Resolved]
  - Seizure [Unknown]
  - Feeling abnormal [Unknown]
